FAERS Safety Report 15000977 (Version 1)
Quarter: 2018Q3

REPORT INFORMATION
  Report Type: Spontaneous
  Country: US (occurrence: US)
  Receive Date: 20180612
  Receipt Date: 20180612
  Transmission Date: 20181010
  Serious: No
  Sender: FDA-Public Use
  Company Number: US-SA-2018SA152529

PATIENT
  Sex: Female

DRUGS (3)
  1. ICY HOT BACK [Suspect]
     Active Substance: MENTHOL
     Indication: SCIATICA
  2. ICY HOT BACK [Suspect]
     Active Substance: MENTHOL
     Indication: MUSCULOSKELETAL CHEST PAIN
  3. ICY HOT BACK [Suspect]
     Active Substance: MENTHOL
     Indication: ARTHRALGIA

REACTIONS (1)
  - Expired product administered [Unknown]
